FAERS Safety Report 22005971 (Version 1)
Quarter: 2023Q1

REPORT INFORMATION
  Report Type: Spontaneous
  Country: US (occurrence: US)
  Receive Date: 20230217
  Receipt Date: 20230217
  Transmission Date: 20230417
  Serious: Yes (Death, Hospitalization, Other)
  Sender: FDA-Public Use
  Company Number: US-ADVANZ PHARMA-202301001004

PATIENT

DRUGS (6)
  1. DIGOXIN [Suspect]
     Active Substance: DIGOXIN
     Dosage: UNK (INGESTION)
     Route: 048
  2. COLCHICINE [Suspect]
     Active Substance: COLCHICINE
     Dosage: UNK (INGESTION)
     Route: 048
  3. TORSEMIDE [Suspect]
     Active Substance: TORSEMIDE
     Dosage: UNK (INGESTION)
     Route: 048
  4. TAMSULOSIN [Suspect]
     Active Substance: TAMSULOSIN
     Dosage: UNK (INGESTION)
     Route: 048
  5. FINASTERIDE [Suspect]
     Active Substance: FINASTERIDE
     Dosage: UNK (INGESTION)
     Route: 048
  6. CYANOCOBALAMIN [Suspect]
     Active Substance: CYANOCOBALAMIN
     Dosage: UNK (INGESTION)
     Route: 048

REACTIONS (1)
  - Medication error [Fatal]
